FAERS Safety Report 18378648 (Version 3)
Quarter: 2020Q4

REPORT INFORMATION
  Report Type: Spontaneous
  Country: NL (occurrence: NL)
  Receive Date: 20201013
  Receipt Date: 20201021
  Transmission Date: 20210114
  Serious: Yes (Hospitalization)
  Sender: FDA-Public Use
  Company Number: NL-ROCHE-2690776

PATIENT
  Age: 63 Year
  Sex: Male

DRUGS (13)
  1. RABEPRAZOLE [Concomitant]
     Active Substance: RABEPRAZOLE
     Route: 048
  2. ESBRIET [Suspect]
     Active Substance: PIRFENIDONE
     Route: 048
  3. GLICLAZIDE [Concomitant]
     Active Substance: GLICLAZIDE
     Dosage: 1 TIME PER DAY 3 TABLETS
     Route: 048
  4. ESBRIET [Suspect]
     Active Substance: PIRFENIDONE
     Dosage: 2 CAPSULES 3 TIMES PER DAY
     Route: 048
  5. ESBRIET [Suspect]
     Active Substance: PIRFENIDONE
     Dosage: 3 TIMES DAILY 2 CAPSULES
     Route: 048
     Dates: start: 20181224
  6. METFORMINE [Concomitant]
     Active Substance: METFORMIN HYDROCHLORIDE
     Route: 048
  7. PAROXETINE. [Concomitant]
     Active Substance: PAROXETINE
     Dosage: 1 TIME PER DAY 2 TABLETS IN THE MORNING
     Route: 048
  8. ESBRIET [Suspect]
     Active Substance: PIRFENIDONE
     Indication: IDIOPATHIC PULMONARY FIBROSIS
     Dosage: 3 CAPSULES 3 TIMES A DAY?3 TIMES DAILY 1 CAPSULE IN BUILD-UP PHASE (DEVIANT SCHEME)
     Route: 048
     Dates: start: 20180109
  9. ACETYLSALICYLIC ACID [Concomitant]
     Active Substance: ASPIRIN
     Route: 048
  10. ESBRIET [Suspect]
     Active Substance: PIRFENIDONE
     Indication: IDIOPATHIC PULMONARY FIBROSIS
     Dosage: 3 X 2 TABLETS 267 MG/TABLET PER DAY?1-2-2 (DAILY)
     Route: 048
     Dates: start: 202007, end: 20200929
  11. ROSUVASTATIN. [Concomitant]
     Active Substance: ROSUVASTATIN
     Route: 048
  12. ESBRIET [Suspect]
     Active Substance: PIRFENIDONE
     Dosage: 3 TIMES DAILY 1 CAPSULE
     Route: 048
     Dates: start: 20181206
  13. ESBRIET [Suspect]
     Active Substance: PIRFENIDONE
     Dosage: 3 TIMES 2 CAPSULES
     Route: 048
     Dates: start: 20181129

REACTIONS (6)
  - Skin discolouration [Recovering/Resolving]
  - Condition aggravated [Recovering/Resolving]
  - Fatigue [Unknown]
  - Dyspnoea [Recovering/Resolving]
  - Sunburn [Recovering/Resolving]
  - Liver function test abnormal [Recovered/Resolved]

NARRATIVE: CASE EVENT DATE: 201810
